FAERS Safety Report 21698352 (Version 1)
Quarter: 2022Q4

REPORT INFORMATION
  Report Type: Spontaneous
  Country: PL (occurrence: PL)
  Receive Date: 20221208
  Receipt Date: 20221208
  Transmission Date: 20230112
  Serious: Yes (Other)
  Sender: FDA-Public Use
  Company Number: PL-WZFPOLFA-322091

PATIENT
  Age: 23 Year
  Sex: Male

DRUGS (1)
  1. LOPERAMIDE [Suspect]
     Active Substance: LOPERAMIDE
     Indication: Mental disorder
     Dosage: 70 MILLIGRAM, ONCE A DAY
     Route: 065

REACTIONS (3)
  - Drug abuse [Unknown]
  - Behaviour disorder [Unknown]
  - Overdose [Unknown]
